FAERS Safety Report 4431294-4 (Version None)
Quarter: 2004Q3

REPORT INFORMATION
  Report Type: 
  Country: None (occurrence: None)
  Receive Date: 20040823
  Receipt Date: 20040823
  Transmission Date: 20050211
  Serious: Yes (Hospitalization, Other)
  Sender: FDA-Public Use
  Company Number: None

PATIENT
  Age: 44 Year
  Sex: Female
  Weight: 57.1532 kg

DRUGS (1)
  1. PREVACID [Suspect]
     Indication: OESOPHAGITIS
     Dosage: 30 MG CAPSULE ORAL
     Route: 048
     Dates: start: 20040817, end: 20040821

REACTIONS (7)
  - ABDOMINAL PAIN [None]
  - CONFUSIONAL STATE [None]
  - EPISTAXIS [None]
  - FATIGUE [None]
  - HAEMATOCHEZIA [None]
  - HYPERSOMNIA [None]
  - INFLUENZA LIKE ILLNESS [None]
